FAERS Safety Report 15319545 (Version 2)
Quarter: 2019Q1

REPORT INFORMATION
  Report Type: Report from Study
  Country: JP (occurrence: JP)
  Receive Date: 20180827
  Receipt Date: 20190202
  Transmission Date: 20190417
  Serious: Yes (Death, Other)
  Sender: FDA-Public Use
  Company Number: JP-AMGEN-JPNNI2018117972

PATIENT
  Age: 85 Year
  Sex: Female
  Weight: 45 kg

DRUGS (4)
  1. CARFILZOMIB [Suspect]
     Active Substance: CARFILZOMIB
     Dosage: 20 MG/BODY, (06/03/2018, 07/03/2018, 13/03/2018, 14/03/2018, 04/04/2018, 05/04/2018, 10/04/2018,11/0
     Route: 041
     Dates: end: 20180411
  2. CARFILZOMIB [Suspect]
     Active Substance: CARFILZOMIB
     Indication: PLASMA CELL MYELOMA
     Dosage: 20 MG/BODY,  (27/11/2017, 28/11/2017, 04/12/2017, 05/12/2017, 11/12/2017, 12/12/2017,09/01/2018,10/0
     Route: 041
     Dates: start: 20171127
  3. DEXAMETHASONE. [Concomitant]
     Active Substance: DEXAMETHASONE
     Indication: PLASMA CELL MYELOMA
     Dosage: 27/11/2017, 28/11/2017, 04/12/2017, 05/12/2017, 11/12/2017, 12/12/2017, 09/01/2018,10/01/2018,16/01/
     Route: 065
     Dates: start: 20171127
  4. DEXAMETHASONE. [Concomitant]
     Active Substance: DEXAMETHASONE
     Dosage: 06/03/2018, 07/03/2018, 13/03/2018, 14/03/2018, 04/04/2018, 05/04/2018, 10/04/2018, 11/04/2018
     Route: 065
     Dates: end: 20180411

REACTIONS (7)
  - Pain in extremity [Unknown]
  - Loss of consciousness [Recovered/Resolved]
  - Fall [Unknown]
  - Pneumonia [Fatal]
  - Blood pressure decreased [Unknown]
  - Eye contusion [Recovering/Resolving]
  - Arthralgia [Recovered/Resolved]

NARRATIVE: CASE EVENT DATE: 2017
